FAERS Safety Report 18425480 (Version 5)
Quarter: 2020Q4

REPORT INFORMATION
  Report Type: Spontaneous
  Country: US (occurrence: US)
  Receive Date: 20201026
  Receipt Date: 20201229
  Transmission Date: 20210114
  Serious: Yes (Hospitalization, Other)
  Sender: FDA-Public Use
  Company Number: US-SA-2020SA295858

PATIENT

DRUGS (14)
  1. PLAQUENIL [Concomitant]
     Active Substance: HYDROXYCHLOROQUINE SULFATE
     Dosage: UNK
     Route: 065
  2. ONFI [Concomitant]
     Active Substance: CLOBAZAM
     Dosage: UNK
     Route: 065
  3. PIMECROLIMUS. [Concomitant]
     Active Substance: PIMECROLIMUS
     Dosage: UNK
     Route: 065
  4. SINGULAIR [Concomitant]
     Active Substance: MONTELUKAST SODIUM
     Dosage: UNK
     Route: 065
  5. VITAMIN B12 [Concomitant]
     Active Substance: CYANOCOBALAMIN
     Dosage: UNK
     Route: 065
  6. GABITRIL [Concomitant]
     Active Substance: TIAGABINE HYDROCHLORIDE
     Dosage: UNK
     Route: 065
  7. DUPIXENT [Suspect]
     Active Substance: DUPILUMAB
     Indication: DERMATITIS ATOPIC
     Dosage: 300 MG, QOW
     Route: 058
     Dates: start: 2020, end: 2020
  8. DOXYCYCLINE HYCLATE. [Concomitant]
     Active Substance: DOXYCYCLINE HYCLATE
     Dosage: UNK
     Route: 065
  9. VIMPAT [Concomitant]
     Active Substance: LACOSAMIDE
     Dosage: UNK
     Route: 065
  10. TACROLIMUS. [Concomitant]
     Active Substance: TACROLIMUS
     Dosage: UNK
     Route: 065
  11. VENTOLIN HFA [Concomitant]
     Active Substance: ALBUTEROL SULFATE
     Dosage: UNK
     Route: 065
  12. DUPIXENT [Suspect]
     Active Substance: DUPILUMAB
     Indication: ILLNESS
     Dosage: 1 DF, QOW
     Route: 058
     Dates: start: 2020
  13. AMITIZA [Concomitant]
     Active Substance: LUBIPROSTONE
     Dosage: UNK
     Route: 065
  14. METOPROLOL SUCCINATE. [Concomitant]
     Active Substance: METOPROLOL SUCCINATE
     Dosage: UNK
     Route: 065

REACTIONS (19)
  - Feeling hot [Unknown]
  - Peripheral coldness [Unknown]
  - Skin irritation [Unknown]
  - Product use in unapproved indication [Unknown]
  - Hypoaesthesia [Unknown]
  - Stress [Unknown]
  - Dry skin [Unknown]
  - Seizure [Not Recovered/Not Resolved]
  - Chronic obstructive pulmonary disease [Unknown]
  - Balance disorder [Unknown]
  - Peripheral swelling [Unknown]
  - Swelling [Unknown]
  - Dry eye [Unknown]
  - Dehydration [Unknown]
  - Paraesthesia [Unknown]
  - Product dose omission issue [Unknown]
  - Systemic lupus erythematosus [Unknown]
  - Memory impairment [Not Recovered/Not Resolved]
  - Abdominal discomfort [Unknown]

NARRATIVE: CASE EVENT DATE: 2020
